FAERS Safety Report 18549496 (Version 2)
Quarter: 2023Q1

REPORT INFORMATION
  Report Type: Spontaneous
  Country: US (occurrence: US)
  Receive Date: 20201126
  Receipt Date: 20230303
  Transmission Date: 20230417
  Serious: No
  Sender: FDA-Public Use
  Company Number: US-SA-2020SA332440

PATIENT
  Age: 18 Year
  Sex: Male

DRUGS (22)
  1. DUPIXENT [Suspect]
     Active Substance: DUPILUMAB
     Indication: Dermatitis atopic
     Dosage: 300 MG, QOW
     Route: 058
     Dates: start: 20201016
  2. TRIAMCINOLONE [Concomitant]
     Active Substance: TRIAMCINOLONE
  3. HERBALS\TURMERIC [Concomitant]
     Active Substance: HERBALS\TURMERIC
  4. HERBALS\VITIS VINIFERA SEED [Concomitant]
     Active Substance: HERBALS\VITIS VINIFERA SEED
  5. QUERCETIN DIHYDRATE [Concomitant]
     Active Substance: QUERCETIN DIHYDRATE
  6. TAURINE [Concomitant]
     Active Substance: TAURINE
  7. METHIONINE [Concomitant]
     Active Substance: METHIONINE
  8. SELENIUM [Concomitant]
     Active Substance: SELENIUM
  9. ZINC [Concomitant]
     Active Substance: ZINC
  10. VITAMIN K [Concomitant]
     Active Substance: PHYTONADIONE
  11. VITAMIN E [Concomitant]
     Active Substance: .ALPHA.-TOCOPHEROL
  12. VITAMIN D3 [Concomitant]
     Active Substance: CHOLECALCIFEROL
  13. VITAMIN C [Concomitant]
     Active Substance: ASCORBIC ACID
  14. RETINOL [Concomitant]
     Active Substance: RETINOL
  15. LITHIUM [Concomitant]
     Active Substance: LITHIUM
  16. MAGNESIUM STEARATE [Concomitant]
     Active Substance: MAGNESIUM STEARATE
  17. GLYCINE [Concomitant]
     Active Substance: GLYCINE
  18. ACETYLCYSTEINE [Concomitant]
     Active Substance: ACETYLCYSTEINE
  19. GLUTATHIONE [Concomitant]
     Active Substance: GLUTATHIONE
  20. COENZYME Q10 [Concomitant]
     Active Substance: DIETARY SUPPLEMENT\UBIDECARENONE
  21. ALBUTEROL SULFATE [Concomitant]
     Active Substance: ALBUTEROL SULFATE
  22. HYDROXYZINE HYDROCHLORIDE [Concomitant]
     Active Substance: HYDROXYZINE HYDROCHLORIDE

REACTIONS (4)
  - Periorbital swelling [Recovered/Resolved]
  - Ocular hyperaemia [Unknown]
  - Erythema [Recovered/Resolved]
  - Eye pruritus [Unknown]

NARRATIVE: CASE EVENT DATE: 20201020
